FAERS Safety Report 8325581-7 (Version None)
Quarter: 2012Q2

REPORT INFORMATION
  Report Type: 
  Country: None (occurrence: None)
  Receive Date: 20120501
  Receipt Date: 20100504
  Transmission Date: 20120825
  Serious: No
  Sender: FDA-Public Use
  Company Number: US-TEVA-2010002547

PATIENT
  Sex: Female
  Weight: 106.69 kg

DRUGS (12)
  1. NUVIGIL [Suspect]
     Indication: SEDATION
     Dosage: 250 MILLIGRAM;
     Route: 048
     Dates: start: 20100201
  2. SOMA [Concomitant]
     Dates: start: 20070101
  3. VITAMIN D [Concomitant]
  4. SEROQUEL [Concomitant]
  5. LYRICA [Concomitant]
     Dates: start: 20070101
  6. LORTAB [Concomitant]
     Dates: start: 20070101
  7. LAXATIVE [Concomitant]
  8. MULTI-VITAMIN [Concomitant]
  9. SUPER B COMPLEX [Concomitant]
  10. LAMICTAL [Concomitant]
     Dates: start: 20100201
  11. XANAX [Concomitant]
     Dates: start: 20060101
  12. IBUPROFEN [Concomitant]
     Dates: start: 20070101

REACTIONS (4)
  - DRY EYE [None]
  - HEADACHE [None]
  - AMNESIA [None]
  - VISUAL IMPAIRMENT [None]
